FAERS Safety Report 18433339 (Version 1)
Quarter: 2020Q4

REPORT INFORMATION
  Report Type: Spontaneous
  Country: US (occurrence: US)
  Receive Date: 20201027
  Receipt Date: 20201027
  Transmission Date: 20210114
  Serious: Yes (Life-Threatening, Hospitalization, Disabling, Other)
  Sender: FDA-Public Use
  Company Number: US-ELI_LILLY_AND_COMPANY-US202010010311

PATIENT
  Sex: Female

DRUGS (4)
  1. HUMALOG [Suspect]
     Active Substance: INSULIN LISPRO
     Dosage: 50.925 U, UNKNOWN
     Route: 058
  2. HUMULIN R [Suspect]
     Active Substance: INSULIN HUMAN
     Indication: DIABETES MELLITUS
     Dosage: UNK, UNKNOWN
     Route: 065
  3. HUMALOG [Suspect]
     Active Substance: INSULIN LISPRO
     Indication: DIABETES MELLITUS
     Dosage: UNK UNK, UNKNOWN
     Route: 058
     Dates: end: 2013
  4. HUMULIN R [Suspect]
     Active Substance: INSULIN HUMAN
     Indication: DIABETES MELLITUS
     Dosage: UNK, UNKNOWN
     Route: 065

REACTIONS (14)
  - Blood glucose decreased [Unknown]
  - Transient ischaemic attack [Unknown]
  - Influenza [Unknown]
  - Loss of consciousness [Unknown]
  - Intracardiac thrombus [Unknown]
  - Gait inability [Unknown]
  - Neuropathy peripheral [Unknown]
  - Coagulopathy [Unknown]
  - Insulin resistance [Unknown]
  - Myocardial infarction [Unknown]
  - Arteriosclerosis [Unknown]
  - Thrombosis [Unknown]
  - Memory impairment [Not Recovered/Not Resolved]
  - Pulmonary thrombosis [Unknown]

NARRATIVE: CASE EVENT DATE: 2013
